FAERS Safety Report 9596717 (Version 1)
Quarter: 2013Q4

REPORT INFORMATION
  Report Type: Spontaneous
  Country: FR (occurrence: FR)
  Receive Date: 20131004
  Receipt Date: 20131004
  Transmission Date: 20140711
  Serious: Yes (Other)
  Sender: FDA-Public Use
  Company Number: FR-GLAXOSMITHKLINE-B0925156A

PATIENT
  Age: 28 Year
  Sex: Female

DRUGS (6)
  1. ARIXTRA [Suspect]
     Indication: PULMONARY EMBOLISM
     Dosage: 7.5MG PER DAY
     Route: 058
     Dates: start: 201308
  2. RIFADINE [Suspect]
     Indication: PRODUCT USED FOR UNKNOWN INDICATION
     Dates: start: 201308
  3. PREVISCAN (FLUINDIONE) [Suspect]
     Indication: PULMONARY EMBOLISM
     Dates: start: 2013
  4. COUMADINE [Suspect]
     Indication: PULMONARY EMBOLISM
     Dates: start: 2013
  5. DALACINE [Concomitant]
     Indication: PRODUCT USED FOR UNKNOWN INDICATION
     Dates: start: 201308
  6. INNOHEP [Concomitant]

REACTIONS (2)
  - Coagulopathy [Not Recovered/Not Resolved]
  - Incorrect drug administration duration [Unknown]
